FAERS Safety Report 5897547-8 (Version None)
Quarter: 2008Q3

REPORT INFORMATION
  Report Type: 
  Country: None (occurrence: None)
  Receive Date: 20080916
  Receipt Date: 20080311
  Transmission Date: 20090109
  Serious: Yes (Hospitalization, Other)
  Sender: FDA-Public Use
  Company Number: S08-USA-00955-01

PATIENT
  Sex: Male

DRUGS (1)
  1. CELEXA [Suspect]
     Dosage: 300 MG (300 MG,ONCE),ORAL
     Route: 048
     Dates: start: 20080310, end: 20080310

REACTIONS (1)
  - INTENTIONAL OVERDOSE [None]
